FAERS Safety Report 23573492 (Version 2)
Quarter: 2024Q1

REPORT INFORMATION
  Report Type: Spontaneous
  Country: SE (occurrence: SE)
  Receive Date: 20240228
  Receipt Date: 20240307
  Transmission Date: 20240409
  Serious: Yes (Disabling)
  Sender: FDA-Public Use
  Company Number: None

PATIENT
  Age: 9 Year
  Sex: Male
  Weight: 80 kg

DRUGS (8)
  1. LOCOID LIPOCREAM [Suspect]
     Active Substance: HYDROCORTISONE BUTYRATE
     Indication: Eczema
     Route: 003
     Dates: start: 20160201, end: 20240201
  2. CLOBETASOL [Suspect]
     Active Substance: CLOBETASOL
     Indication: Eczema
     Dosage: 2 TIMES/DAY 14 DAYS
     Route: 003
     Dates: start: 20190901, end: 20191231
  3. GLYCERIN [Suspect]
     Active Substance: GLYCERIN
     Indication: Eczema
     Dosage: 2 TIMES PER DAY
     Route: 003
     Dates: start: 20230501, end: 20230701
  4. ELOCON [Suspect]
     Active Substance: MOMETASONE FUROATE
     Indication: Eczema
     Dosage: 2 TIMES PER DAY
     Route: 003
     Dates: start: 20230501, end: 20230701
  5. BETNOVATE [Suspect]
     Active Substance: BETAMETHASONE
     Indication: Eczema
     Dosage: APPLY 2 TIMES/DAY FOR 14 DAYS
     Route: 003
     Dates: start: 20140102, end: 20190801
  6. HYDROCORTISONE [Suspect]
     Active Substance: HYDROCORTISONE
     Indication: Eczema
     Dosage: 2 TIMES PER DAY
     Route: 003
     Dates: start: 20230501, end: 20230701
  7. HYDROCORTISONE ACETATE [Suspect]
     Active Substance: HYDROCORTISONE ACETATE
     Indication: Eczema
     Dosage: 5 MG/G  2 TIMES PER DAY
     Route: 003
     Dates: start: 20230501, end: 20230701
  8. PROTOPIC [Suspect]
     Active Substance: TACROLIMUS
     Indication: Eczema
     Dosage: APPLIED 2 TIMES/DAY FOR 14 DAYS
     Route: 003
     Dates: start: 20171101, end: 20201001

REACTIONS (3)
  - Pain [Not Recovered/Not Resolved]
  - Skin reaction [Not Recovered/Not Resolved]
  - Skin infection [Not Recovered/Not Resolved]
